FAERS Safety Report 19239739 (Version 3)
Quarter: 2021Q2

REPORT INFORMATION
  Report Type: Report from Study
  Country: CR (occurrence: CR)
  Receive Date: 20210510
  Receipt Date: 20210623
  Transmission Date: 20210717
  Serious: Yes (Life-Threatening, Hospitalization, Other)
  Sender: FDA-Public Use
  Company Number: NVSC2021CR104479

PATIENT
  Age: 61 Year
  Sex: Female
  Weight: 90 kg

DRUGS (8)
  1. EXFORGE [Suspect]
     Active Substance: AMLODIPINE BESYLATE\VALSARTAN
     Indication: HYPERTENSION
  2. PROTON [Concomitant]
     Active Substance: OMEPRAZOLE
     Indication: GASTRIC DISORDER
     Dosage: UNK (FOR SEVERAL YEARS AGO)
     Route: 065
  3. GALVUS MET [Suspect]
     Active Substance: METFORMIN HYDROCHLORIDE\VILDAGLIPTIN
     Indication: DIABETES MELLITUS
     Dosage: UNK UNK, BID (1 IN THE MORNING AND 1 AT NIGHT)
     Route: 048
     Dates: start: 2016
  4. SERETIDE [Concomitant]
     Active Substance: FLUTICASONE PROPIONATE\SALMETEROL XINAFOATE
     Indication: ASTHMA
     Dosage: UNK (WHEN NEEDED)
     Route: 065
  5. GALVUS MET [Suspect]
     Active Substance: METFORMIN HYDROCHLORIDE\VILDAGLIPTIN
     Dosage: UNK UNK, BID (1 IN THE MORNING AND 1 AT NIGHT)
     Route: 048
  6. LEVOTHYROXINE. [Concomitant]
     Active Substance: LEVOTHYROXINE
     Indication: PRODUCT USED FOR UNKNOWN INDICATION
     Dosage: 1 DF, QD
     Route: 048
     Dates: start: 2012
  7. FUROSEMIDE. [Concomitant]
     Active Substance: FUROSEMIDE
     Indication: PRODUCT USED FOR UNKNOWN INDICATION
     Dosage: 1 DF, QD
     Route: 065
  8. EXFORGE [Suspect]
     Active Substance: AMLODIPINE BESYLATE\VALSARTAN
     Indication: BLOOD PRESSURE ABNORMAL
     Dosage: 5 / 320 MG
     Route: 065
     Dates: start: 202006, end: 20210407

REACTIONS (23)
  - Eye pain [Unknown]
  - Swelling [Unknown]
  - Peripheral swelling [Unknown]
  - Gait disturbance [Recovering/Resolving]
  - Face injury [Unknown]
  - Oxygen saturation decreased [Unknown]
  - Pyrexia [Unknown]
  - Abdominal discomfort [Unknown]
  - Blood glucose increased [Unknown]
  - Periorbital swelling [Unknown]
  - Thrombosis [Unknown]
  - Diarrhoea [Unknown]
  - Abnormal sensation in eye [Unknown]
  - Decreased appetite [Unknown]
  - Chest pain [Unknown]
  - Diverticulum intestinal [Unknown]
  - Limb injury [Unknown]
  - Tachycardia [Unknown]
  - Fall [Unknown]
  - Joint injury [Unknown]
  - COVID-19 [Recovered/Resolved with Sequelae]
  - Lacrimation increased [Unknown]
  - Fatigue [Unknown]

NARRATIVE: CASE EVENT DATE: 2020
